FAERS Safety Report 7486529-0 (Version None)
Quarter: 2011Q2

REPORT INFORMATION
  Report Type: 
  Country: None (occurrence: None)
  Receive Date: 20110517
  Receipt Date: 20110504
  Transmission Date: 20111010
  Serious: Yes (Other)
  Sender: FDA-Public Use
  Company Number: TR-UCBSA-032256

PATIENT
  Age: 45 Year
  Sex: Male

DRUGS (3)
  1. KEPPRA [Suspect]
     Route: 042
  2. ENOXAPARIN [Concomitant]
  3. KEPPRA [Suspect]
     Route: 042

REACTIONS (1)
  - ELECTROCARDIOGRAM QT PROLONGED [None]
